FAERS Safety Report 8465265 (Version 2)
Quarter: 2012Q4

REPORT INFORMATION
  Report Type: Report from Study
  Country: JP (occurrence: JP)
  Receive Date: 20120319
  Receipt Date: 20121102
  Transmission Date: 20130627
  Serious: Yes (Death, Hospitalization)
  Sender: FDA-Public Use
  Company Number: JP-PFIZER INC-2012067584

PATIENT
  Age: 70 Year
  Sex: Female
  Weight: 34.7 kg

DRUGS (14)
  1. SILDENAFIL CITRATE [Suspect]
     Indication: PULMONARY HYPERTENSION
     Dosage: 20 mg, 3x/day
     Route: 048
     Dates: start: 20090312
  2. ALLOPURINOL [Concomitant]
     Dosage: UNK
     Route: 048
     Dates: end: 20100618
  3. FAMOTIDIN [Concomitant]
     Dosage: UNK
     Route: 048
     Dates: end: 20100618
  4. TRACLEER [Concomitant]
     Indication: PULMONARY HYPERTENSION
     Dosage: UNK
     Route: 048
  5. METHYCOBAL [Concomitant]
     Dosage: UNK
     Route: 048
     Dates: end: 20100618
  6. SENNOSIDE A+B [Concomitant]
     Dosage: UNK
     Route: 048
     Dates: end: 20100618
  7. DAIKENTYUTO [Concomitant]
     Dosage: UNK
     Route: 048
  8. LOXOPROFEN SODIUM [Concomitant]
     Dosage: UNK
     Route: 048
     Dates: start: 20090403
  9. MAG-LAX [Concomitant]
     Dosage: UNK
     Route: 048
     Dates: start: 20090407, end: 20100618
  10. LASIX [Concomitant]
     Dosage: UNK
     Route: 048
     Dates: start: 20090414
  11. FERROUS CITRATE SODIUM [Concomitant]
     Dosage: UNK
     Route: 048
     Dates: start: 20090414
  12. MS HOT PACK [Concomitant]
     Dosage: UNK
     Route: 061
     Dates: start: 20090522
  13. BENZALIN [Concomitant]
     Dosage: UNK
     Route: 048
     Dates: start: 20090509
  14. FLOLAN [Concomitant]
     Indication: PULMONARY HYPERTENSION
     Dosage: UNK
     Route: 042

REACTIONS (4)
  - Pulmonary arterial hypertension [Fatal]
  - Pneumothorax [Not Recovered/Not Resolved]
  - Pneumonia aspiration [Recovering/Resolving]
  - Malnutrition [Not Recovered/Not Resolved]
